FAERS Safety Report 6135232-8 (Version None)
Quarter: 2009Q1

REPORT INFORMATION
  Report Type: 
  Country: None (occurrence: None)
  Receive Date: 20090327
  Receipt Date: 20090316
  Transmission Date: 20090719
  Serious: Yes (Disabling, Other)
  Sender: FDA-Public Use
  Company Number: US-PFIZER INC-2009183575

PATIENT
  Sex: Female
  Weight: 54.422 kg

DRUGS (1)
  1. RELPAX [Suspect]
     Indication: MIGRAINE
     Dosage: FREQUENCY: PRN,

REACTIONS (2)
  - DEPRESSION [None]
  - GENERALISED ANXIETY DISORDER [None]
